FAERS Safety Report 19880523 (Version 2)
Quarter: 2021Q4

REPORT INFORMATION
  Report Type: Spontaneous
  Country: CN (occurrence: CN)
  Receive Date: 20210924
  Receipt Date: 20211005
  Transmission Date: 20220303
  Serious: Yes (Hospitalization, Other)
  Sender: FDA-Public Use
  Company Number: CN-MLMSERVICE-20210914-3107595-1

PATIENT
  Age: 11 Year
  Sex: Male
  Weight: 30 kg

DRUGS (12)
  1. METHYLPREDNISOLONE [Suspect]
     Active Substance: METHYLPREDNISOLONE
     Indication: Graft versus host disease
     Dosage: 12 MG, 2X/DAY
     Route: 048
     Dates: start: 20160602
  2. METHYLPREDNISOLONE [Suspect]
     Active Substance: METHYLPREDNISOLONE
     Indication: Immunosuppressant drug therapy
     Dosage: 8 MG, 2X/DAY
     Route: 048
     Dates: start: 201701, end: 201702
  3. METHYLPREDNISOLONE [Suspect]
     Active Substance: METHYLPREDNISOLONE
     Dosage: 2 MG, 2X/DAY
     Route: 048
     Dates: start: 201801, end: 201805
  4. METHYLPREDNISOLONE [Suspect]
     Active Substance: METHYLPREDNISOLONE
     Dosage: 4 MG, 2X/DAY
     Route: 048
     Dates: start: 201702, end: 201703
  5. MYCOPHENOLATE MOFETIL [Concomitant]
     Active Substance: MYCOPHENOLATE MOFETIL
     Indication: Immunosuppressant drug therapy
     Dosage: 250 MG, 2X/DAY
     Route: 048
     Dates: start: 20160602
  6. CYCLOSPORINE [Concomitant]
     Active Substance: CYCLOSPORINE
     Indication: Graft versus host disease
     Dosage: 50 MG, 2X/DAY
  7. CYCLOSPORINE [Concomitant]
     Active Substance: CYCLOSPORINE
     Indication: Immunosuppressant drug therapy
     Dosage: 75 MG, 2X/DAY
     Route: 048
     Dates: start: 20160602
  8. CYCLOSPORINE [Concomitant]
     Active Substance: CYCLOSPORINE
     Dosage: 25 MG, 1X/DAY
     Route: 048
     Dates: start: 201801, end: 201804
  9. CYCLOSPORINE [Concomitant]
     Active Substance: CYCLOSPORINE
     Dosage: 75 MG, 1X/DAY
     Route: 048
     Dates: start: 201804
  10. GANCICLOVIR [Concomitant]
     Active Substance: GANCICLOVIR
     Indication: Graft versus host disease
     Dosage: 150 MG, 2X/DAY
     Route: 048
     Dates: start: 201801
  11. SIROLIMUS [Concomitant]
     Active Substance: SIROLIMUS
     Indication: Immunosuppressant drug therapy
     Dosage: 1 MG, 1X/DAY
     Route: 048
     Dates: start: 201711
  12. TACROLIMUS [Concomitant]
     Active Substance: TACROLIMUS
     Indication: Immunosuppressant drug therapy
     Dosage: 2.5 MG, 3X/DAY
     Route: 048
     Dates: start: 201711

REACTIONS (2)
  - Perthes disease [Unknown]
  - Osteoporosis [Unknown]

NARRATIVE: CASE EVENT DATE: 20180401
